FAERS Safety Report 20063679 (Version 1)
Quarter: 2021Q4

REPORT INFORMATION
  Report Type: Spontaneous
  Country: US (occurrence: None)
  Receive Date: 20211112
  Receipt Date: 20211112
  Transmission Date: 20220303
  Serious: No
  Sender: FDA-Public Use
  Company Number: None

PATIENT
  Age: 50 Year
  Sex: Female
  Weight: 88.2 kg

DRUGS (6)
  1. REGEN-COV [Suspect]
     Active Substance: CASIRIVIMAB\IMDEVIMAB
     Indication: SARS-CoV-2 test positive
     Dates: start: 20211110, end: 20211110
  2. ALLEGRA [Concomitant]
     Active Substance: FEXOFENADINE HYDROCHLORIDE
  3. QNASL [Concomitant]
     Active Substance: BECLOMETHASONE DIPROPIONATE
  4. METFORMIN [Concomitant]
     Active Substance: METFORMIN HYDROCHLORIDE
  5. ROSUVASTATIN [Concomitant]
     Active Substance: ROSUVASTATIN
  6. elderberry with zinc [Concomitant]

REACTIONS (3)
  - Chest discomfort [None]
  - Infusion related reaction [None]
  - Erythema [None]

NARRATIVE: CASE EVENT DATE: 20211110
